FAERS Safety Report 18397644 (Version 1)
Quarter: 2020Q4

REPORT INFORMATION
  Report Type: Spontaneous
  Country: PR (occurrence: PR)
  Receive Date: 20201018
  Receipt Date: 20201018
  Transmission Date: 20210114
  Serious: No
  Sender: FDA-Public Use
  Company Number: None

PATIENT
  Age: 37 Year
  Sex: Female
  Weight: 103.5 kg

DRUGS (10)
  1. WILEXA [Concomitant]
  2. RESTORIL [Concomitant]
     Active Substance: TEMAZEPAM
  3. TUMERIC [Concomitant]
     Active Substance: HERBALS\TURMERIC
  4. TRAZODONE [Concomitant]
     Active Substance: TRAZODONE HYDROCHLORIDE
  5. SYNTHROID [Concomitant]
     Active Substance: LEVOTHYROXINE SODIUM
  6. ALBUTEROL. [Concomitant]
     Active Substance: ALBUTEROL
  7. VITAMIN D3 [Concomitant]
     Active Substance: CHOLECALCIFEROL
  8. MULTIVITAMINS [Concomitant]
     Active Substance: VITAMINS
  9. TEMAZEPAM 30MG [Suspect]
     Active Substance: TEMAZEPAM
     Indication: INSOMNIA
     Dosage: QUANTITY:1 CAPSULE(S);?
     Route: 048
     Dates: start: 20200820, end: 20201018
  10. CALTRATE [Concomitant]
     Active Substance: CALCIUM CARBONATE

REACTIONS (2)
  - Fatigue [None]
  - Abnormal dreams [None]

NARRATIVE: CASE EVENT DATE: 20201008
